FAERS Safety Report 9559206 (Version 2)
Quarter: 2014Q1

REPORT INFORMATION
  Report Type: Spontaneous
  Country: US (occurrence: None)
  Receive Date: 20130906
  Receipt Date: 20131205
  Transmission Date: 20141002
  Serious: No
  Sender: FDA-Public Use
  Company Number: 163-POMAL-13062228

PATIENT
  Sex: Female

DRUGS (14)
  1. POMALYST [Suspect]
     Indication: PLASMA CELL MYELOMA
     Dosage: 4 MG, 21 IN 28 D, PO
     Route: 048
     Dates: start: 20130520, end: 2013
  2. LEVOTHYROXINE(LEVOTHYROXINE) [Concomitant]
  3. DEXAMETHASONE(DEXAMETHASONE) [Concomitant]
  4. DOCUSATE(DOCUSATE) [Concomitant]
  5. POLYETHYLENE GLYCOL 3350 (MACROGOL 3350) [Concomitant]
  6. OXYCODONE ER(OXYCODONE HYDROCHLORIDE) [Concomitant]
  7. ACYCLOVIR(ACICLOVER) [Concomitant]
  8. ZOMETA(ZOLEDRONIC ACID) [Concomitant]
  9. FRAGMIN(HEPARIN-FRACTION, SODIUM SALT) [Concomitant]
  10. FRAGMIN(HEPARIN-FRACTION, SODIUM SALT) [Concomitant]
  11. COUMADIN(WARFARIN SODIUM) [Concomitant]
  12. FOLIC ACID (FOLIC ACID) [Concomitant]
  13. CALTRATE(CALCIUM CARBONATE) [Concomitant]
  14. CORTISONE(CORTISONE) [Concomitant]

REACTIONS (5)
  - Hypoaesthesia [None]
  - Fatigue [None]
  - Rash [None]
  - Back pain [None]
  - Adverse drug reaction [None]
